FAERS Safety Report 10643382 (Version 1)
Quarter: 2014Q4

REPORT INFORMATION
  Report Type: Spontaneous
  Country: US (occurrence: None)
  Receive Date: 20141121
  Receipt Date: 20141121
  Transmission Date: 20150529
  Serious: No
  Sender: FDA-Public Use
  Company Number: 163-10004-14072477

PATIENT
  Age: 50 Year
  Sex: Female

DRUGS (9)
  1. OTEZLA [Suspect]
     Active Substance: APREMILAST
     Indication: PSORIATIC ARTHROPATHY
     Dosage: 60 MG,  2 IN 1 D, PO
     Route: 048
     Dates: start: 201405
  2. SUMATRIPTAN (SUMATRIPTAN) [Concomitant]
     Active Substance: SUMATRIPTAN
  3. ZOLPIDEM (ZOLPIDEM) [Concomitant]
     Active Substance: ZOLPIDEM TARTRATE
  4. DULOXETINE (DULOXETINE) [Concomitant]
  5. HYDROCODONE/APAP (PARACETAMOL, HYDROCODONE BITARTRATE) [Concomitant]
  6. COLCRYS [Concomitant]
     Active Substance: COLCHICINE
  7. PREDNISONE (PREDNISONE) [Concomitant]
     Active Substance: PREDNISONE
  8. VITAMIN B-12 (CYANOCOBALAMIN) [Concomitant]
  9. MARINOL [Concomitant]
     Active Substance: DRONABINOL

REACTIONS (5)
  - Gastrooesophageal reflux disease [None]
  - Swelling [None]
  - Migraine [None]
  - Decreased appetite [None]
  - Joint swelling [None]

NARRATIVE: CASE EVENT DATE: 201405
